FAERS Safety Report 13528000 (Version 2)
Quarter: 2017Q3

REPORT INFORMATION
  Report Type: Spontaneous
  Country: US (occurrence: US)
  Receive Date: 20170509
  Receipt Date: 20170721
  Transmission Date: 20171127
  Serious: No
  Sender: FDA-Public Use
  Company Number: US-PFIZER INC-2017201693

PATIENT
  Sex: Female

DRUGS (1)
  1. XELJANZ XR [Suspect]
     Active Substance: TOFACITINIB CITRATE
     Dosage: 11 MG, DAILY

REACTIONS (19)
  - Arthralgia [Unknown]
  - Pain [Unknown]
  - Aspartate aminotransferase increased [Unknown]
  - Musculoskeletal stiffness [Unknown]
  - Headache [Unknown]
  - Neutrophil count increased [Unknown]
  - Red blood cell sedimentation rate increased [Unknown]
  - Drug ineffective [Unknown]
  - Asthenia [Unknown]
  - Pain in extremity [Unknown]
  - Alanine aminotransferase increased [Unknown]
  - Musculoskeletal pain [Unknown]
  - Blood cholesterol increased [Unknown]
  - Low density lipoprotein increased [Unknown]
  - Fatigue [Unknown]
  - Carbon dioxide decreased [Unknown]
  - Blood alkaline phosphatase increased [Unknown]
  - High density lipoprotein increased [Unknown]
  - Joint swelling [Unknown]
